FAERS Safety Report 7435593-3 (Version None)
Quarter: 2011Q2

REPORT INFORMATION
  Report Type: 
  Country: None (occurrence: None)
  Receive Date: 20110425
  Receipt Date: 20110425
  Transmission Date: 20111010
  Serious: No
  Sender: FDA-Public Use
  Company Number: US-ROXANE LABORATORIES, INC.-2011-RO-00567RO

PATIENT
  Age: 41 Year
  Sex: Male

DRUGS (1)
  1. PREDNISONE [Suspect]

REACTIONS (3)
  - OSTEOPOROSIS [None]
  - BACK DISORDER [None]
  - INTERVERTEBRAL DISC PROTRUSION [None]
